FAERS Safety Report 6079689-X (Version None)
Quarter: 2009Q1

REPORT INFORMATION
  Report Type: 
  Country: None (occurrence: None)
  Receive Date: 20090212
  Receipt Date: 20090204
  Transmission Date: 20090719
  Serious: Yes (Hospitalization)
  Sender: FDA-Public Use
  Company Number: 1000003905

PATIENT
  Age: 78 Year
  Sex: Female

DRUGS (6)
  1. ESCITALOPRAM [Suspect]
     Dosage: 10 MG (10 MG, 1 IN 1 D), ORAL
     Route: 048
     Dates: end: 20081118
  2. IXPRIM (TABLETS) [Suspect]
     Dosage: 3 DOSAGE FORMS (1 DOSAGE FORMS, 3 IN 1 D), ORAL
     Route: 048
     Dates: start: 20081010, end: 20081118
  3. ARICEPT (TABLETS) [Concomitant]
  4. COTAREG [Concomitant]
  5. CACIT D3 [Concomitant]
  6. FOSAMAX [Concomitant]

REACTIONS (10)
  - CONFUSIONAL STATE [None]
  - CREATININE RENAL CLEARANCE DECREASED [None]
  - DISORIENTATION [None]
  - DRUG LEVEL BELOW THERAPEUTIC [None]
  - FALL [None]
  - HYPERTONIA [None]
  - HYPOKALAEMIA [None]
  - ORTHOSTATIC HYPOTENSION [None]
  - POSTURE ABNORMAL [None]
  - STATUS EPILEPTICUS [None]
